FAERS Safety Report 7265507-0 (Version None)
Quarter: 2011Q1

REPORT INFORMATION
  Report Type: 
  Country: None (occurrence: None)
  Receive Date: 20110131
  Receipt Date: 20110126
  Transmission Date: 20110831
  Serious: Yes (Hospitalization)
  Sender: FDA-Public Use
  Company Number: IT-ROCHE-755566

PATIENT
  Sex: Male

DRUGS (3)
  1. RIVOTRIL [Suspect]
     Dosage: FREQUENCY : TOTAL
     Route: 048
     Dates: start: 20110119, end: 20110119
  2. RAMIPRIL [Suspect]
     Dosage: FREQUENCY : TOTAL
     Route: 048
     Dates: start: 20110119, end: 20110119
  3. SOTALOL [Suspect]
     Dosage: FRQUENCY : TOTAL
     Route: 048
     Dates: start: 20110119, end: 20110119

REACTIONS (1)
  - BRADYCARDIA [None]
